FAERS Safety Report 22526696 (Version 1)
Quarter: 2023Q2

REPORT INFORMATION
  Report Type: Spontaneous
  Country: US (occurrence: US)
  Receive Date: 20230606
  Receipt Date: 20230606
  Transmission Date: 20230721
  Serious: No
  Sender: FDA-Public Use
  Company Number: US-UPSHER-SMITH LABORATORIES, LLC-2022USL00787

PATIENT

DRUGS (1)
  1. NYAMYC [Suspect]
     Active Substance: NYSTATIN
     Indication: Fungal infection
     Route: 061

REACTIONS (4)
  - Oral pain [Unknown]
  - Oropharyngeal pain [Unknown]
  - Pulmonary pain [Unknown]
  - Accidental exposure to product [Recovered/Resolved]
